FAERS Safety Report 6660399-2 (Version None)
Quarter: 2010Q1

REPORT INFORMATION
  Report Type: 
  Country: None (occurrence: None)
  Receive Date: 20100330
  Receipt Date: 20100330
  Transmission Date: 20100710
  Serious: Yes (Death, Hospitalization)
  Sender: FDA-Public Use
  Company Number: None

PATIENT
  Age: 60 Year
  Sex: Male
  Weight: 68.0396 kg

DRUGS (1)
  1. MIRAPEX [Suspect]
     Indication: TREMOR
     Dates: start: 20100101

REACTIONS (1)
  - PARKINSON'S DISEASE [None]
